FAERS Safety Report 11777327 (Version 1)
Quarter: 2015Q4

REPORT INFORMATION
  Report Type: Spontaneous
  Country: US (occurrence: US)
  Receive Date: 20151125
  Receipt Date: 20151125
  Transmission Date: 20160304
  Serious: No
  Sender: FDA-Public Use
  Company Number: US-BAYER-2015-473903

PATIENT
  Age: 3 Year
  Sex: Male
  Weight: 13.6 kg

DRUGS (2)
  1. CLARITIN REDITABS [Suspect]
     Active Substance: LORATADINE
     Dosage: 3 DF, ONCE
  2. CLARITIN REDITABS [Suspect]
     Active Substance: LORATADINE
     Dosage: 5 MG, UNK

REACTIONS (1)
  - Accidental exposure to product by child [None]
